FAERS Safety Report 14020586 (Version 1)
Quarter: 2017Q3

REPORT INFORMATION
  Report Type: Spontaneous
  Country: US (occurrence: US)
  Receive Date: 20170928
  Receipt Date: 20170928
  Transmission Date: 20171128
  Serious: No
  Sender: FDA-Public Use
  Company Number: US-PFIZER INC-2017413769

PATIENT
  Age: 76 Year
  Sex: Female
  Weight: 113.4 kg

DRUGS (3)
  1. LYRICA [Suspect]
     Active Substance: PREGABALIN
     Indication: PARAESTHESIA
  2. LYRICA [Suspect]
     Active Substance: PREGABALIN
     Indication: FIBROMYALGIA
     Dosage: UNK , 2X/DAY [TWO CAPSULES IN THE MORNING, AND THEN ONE CAPSULE AT NIGHT]
  3. LYRICA [Suspect]
     Active Substance: PREGABALIN
     Indication: NEUROPATHY PERIPHERAL

REACTIONS (5)
  - Drug ineffective [Unknown]
  - Overdose [Unknown]
  - Fatigue [Unknown]
  - Cardiac disorder [Unknown]
  - Memory impairment [Unknown]
